FAERS Safety Report 9028027 (Version 3)
Quarter: 2013Q3

REPORT INFORMATION
  Report Type: Report from Study
  Country: DE (occurrence: DE)
  Receive Date: 20130123
  Receipt Date: 20130722
  Transmission Date: 20140515
  Serious: Yes (Other)
  Sender: FDA-Public Use
  Company Number: DE-ROCHE-1181863

PATIENT
  Age: 62 Year
  Sex: Female
  Weight: 62.5 kg

DRUGS (6)
  1. DOXORUBICIN [Suspect]
     Indication: BREAST NEOPLASM
     Dosage: DATE OF LAST PRIOR TO SAE: 28/NOV/2012
     Route: 042
     Dates: start: 20120925, end: 20121203
  2. DOXORUBICIN [Suspect]
     Route: 042
     Dates: start: 20121219
  3. TRASTUZUMAB [Suspect]
     Indication: BREAST NEOPLASM
     Dosage: DATE OF LAST DOSE PRIOR TO SAE: 28/NOV/2012
     Route: 042
     Dates: start: 20120925
  4. PACLITAXEL [Suspect]
     Indication: BREAST NEOPLASM
     Dosage: DATE OF LAST PRIOR TO SAE: 28/NOV/2012
     Route: 042
     Dates: start: 20120925, end: 20121203
  5. PACLITAXEL [Suspect]
     Route: 042
     Dates: start: 20121219
  6. LAPATINIB [Suspect]
     Indication: BREAST NEOPLASM
     Dosage: DATE OF LAST PRIOR TO SAE: 03/DEC/2012
     Route: 048
     Dates: start: 20120925

REACTIONS (1)
  - Palmar-plantar erythrodysaesthesia syndrome [Recovered/Resolved]
